FAERS Safety Report 23264537 (Version 3)
Quarter: 2023Q4

REPORT INFORMATION
  Report Type: Report from Study
  Country: US (occurrence: US)
  Receive Date: 20231205
  Receipt Date: 20231213
  Transmission Date: 20240110
  Serious: Yes (Other)
  Sender: FDA-Public Use
  Company Number: US-ABBVIE-5525511

PATIENT
  Sex: Male

DRUGS (32)
  1. VENCLEXTA [Suspect]
     Active Substance: VENETOCLAX
     Indication: Chronic lymphocytic leukaemia
     Dosage: LAST ADMIN DATE:2023?STRENGTH: 100 MG
     Route: 048
     Dates: start: 20231127
  2. ALUMINUM HYDROXIDE\DIMETHICONE\MAGNESIUM HYDROXIDE [Concomitant]
     Active Substance: ALUMINUM HYDROXIDE\DIMETHICONE\MAGNESIUM HYDROXIDE
     Indication: Product used for unknown indication
     Dosage: SUSPENSION
  3. FLUDROCORTISONE [Concomitant]
     Active Substance: FLUDROCORTISONE
     Indication: Product used for unknown indication
     Dosage: STRENGTH: 0.1 MG
  4. MIDODRINE [Concomitant]
     Active Substance: MIDODRINE
     Indication: Product used for unknown indication
     Dosage: STRENGTH: 2.5 MG
  5. SULFAMETHOXAZOLE AND TRIMETHOPRIM [Concomitant]
     Active Substance: SULFAMETHOXAZOLE\TRIMETHOPRIM
     Indication: Product used for unknown indication
     Dosage: STRENGTH: 800/160 MG
  6. TRIAMCINOLONE [Concomitant]
     Active Substance: TRIAMCINOLONE
     Indication: Product used for unknown indication
     Dosage: STRENGTH: 0.1%
  7. BRUKINSA [Concomitant]
     Active Substance: ZANUBRUTINIB
     Indication: Product used for unknown indication
     Dosage: STRENGTH: 80 MG,  OSU-22157
  8. CALQUENCE [Concomitant]
     Active Substance: ACALABRUTINIB
     Indication: Product used for unknown indication
     Dosage: STRENGTH: 100 MG?DATE GIVEN: 18-JAN-2023, 21-DEC-2022,14-DEC-2022, 23-NOV-2022
  9. CALQUENCE [Concomitant]
     Active Substance: ACALABRUTINIB
     Indication: Product used for unknown indication
     Dates: start: 20221214
  10. CALQUENCE [Concomitant]
     Active Substance: ACALABRUTINIB
     Indication: Product used for unknown indication
     Dates: start: 20221221
  11. CALQUENCE [Concomitant]
     Active Substance: ACALABRUTINIB
     Indication: Product used for unknown indication
     Dates: start: 20230118
  12. TYLENOL [Concomitant]
     Active Substance: ACETAMINOPHEN
     Indication: Product used for unknown indication
     Dosage: STRENGTH: 650 MG?,DATE GIVEN: 09-NOV-2023, 17-OCT-2023, 07-MAY-2023, 17-MAY-2023, 28-APR-2023,? 2...
  13. ADRIAMYCIN [Concomitant]
     Active Substance: DOXORUBICIN HYDROCHLORIDE
     Indication: Product used for unknown indication
     Dosage: STRENGTH: 99 MG?DATE GIVEN 07-JUN-2023,17-MAY-2023, 28-APR-2023
  14. ATIVAN [Concomitant]
     Active Substance: LORAZEPAM
     Indication: Product used for unknown indication
     Dosage: STRENGTH: 1 MG?DATE GIVEN 07-JUN-2023
  15. BREYANZI [Concomitant]
     Active Substance: LISOCABTAGENE MARALEUCEL
     Indication: Product used for unknown indication
     Dosage: STRENGTH: 3.1 ML?DATE GIVEN: 17-OCT-2023
  16. ZOFRAN [Concomitant]
     Active Substance: ONDANSETRON HYDROCHLORIDE
     Indication: Product used for unknown indication
     Dosage: STRENGTH: 16 MG?DATE GIVEN : 12-OCT-2023, 13-OCT-2023
  17. NEULASTA [Concomitant]
     Active Substance: PEGFILGRASTIM
     Indication: Product used for unknown indication
     Dosage: STRENGTH: 6 MG?DATE GIVEN: 07-JUN-2023, 17-MAY-2023, 28-APR-2023
  18. K-DUR [Concomitant]
     Active Substance: POTASSIUM CHLORIDE
     Indication: Product used for unknown indication
     Dosage: STRENGTH: 40 MEQ?DATE GIVEN: 09-NOV-2023 19-OCT-2023
  19. SODIUM CHLORIDE [Concomitant]
     Active Substance: SODIUM CHLORIDE
     Indication: Product used for unknown indication
     Dosage: STRENGTH: 0.9% IV SOLUTION 500 ML?DATE GIVEN: 09-NOV-2023, 17-OCT-2023, 07-JUN-2023, 17-MAY-2023,...
     Route: 042
  20. SODIUM CHLORIDE [Concomitant]
     Active Substance: SODIUM CHLORIDE
     Indication: Product used for unknown indication
     Dosage: 0.9% IV SOLUTION 1,000 ML?DATE GIVEN: 15-OCT-2023, 13-OCT-2023, 12-OCT-2023
     Route: 042
  21. BENADRYL [Concomitant]
     Active Substance: DIPHENHYDRAMINE HYDROCHLORIDE
     Indication: Product used for unknown indication
     Dosage: STRENGTH: INJECTION 50 MG?DATE GIVEN: 09-NOV-2023
  22. BENADRYL [Concomitant]
     Active Substance: DIPHENHYDRAMINE HYDROCHLORIDE
     Indication: Product used for unknown indication
     Dosage: INJECTION 25 MG?DATE GIVEN :17-OCT-2023
  23. BENADRYL [Concomitant]
     Active Substance: DIPHENHYDRAMINE HYDROCHLORIDE
     Indication: Product used for unknown indication
     Dosage: STRENGTH: 50 MG?DATE GIVEN: 07-JUN-2023,17-MAY-2023, 28-APR-2023
  24. BENADRYL [Concomitant]
     Active Substance: DIPHENHYDRAMINE HYDROCHLORIDE
     Indication: Product used for unknown indication
     Dosage: STRENGTH: 50 MG ?DATE GIVEN: 28-APR-2023
  25. DELTASONE [Concomitant]
     Active Substance: PREDNISONE
     Indication: Product used for unknown indication
     Dosage: STRENGTH: 100 MG?DATE GIVEN: 07-JUN-2023,17-MAY-2023,28-APR-2023
  26. PRIVIGEN [Concomitant]
     Active Substance: HUMAN IMMUNOGLOBULIN G
     Indication: Product used for unknown indication
     Dosage: INFUSION 30 G?DATE GIVEN: 09-NOV-2023
  27. FLUDARA [Concomitant]
     Active Substance: FLUDARABINE PHOSPHATE
     Indication: Product used for unknown indication
     Dosage: 60 MG IN SODIUM CHLORIDE 0.9%, WITH OVERFILL, TUBING 126.4 ML (TOTAL VOLUME) CHEMO? INFUSION?DATE...
  28. CYTOXAN [Concomitant]
     Active Substance: CYCLOPHOSPHAMIDE
     Indication: Product used for unknown indication
     Dosage: 600 MG IN SODIUM CHLORIDE 0.9%, WITH OVERFILL, TUBING 154 ML (TOTAL VOLUME) CHEMO? INFUSION?DATE ...
  29. CYTOXAN [Concomitant]
     Active Substance: CYCLOPHOSPHAMIDE
     Indication: Product used for unknown indication
     Dosage: 1,490 MG IN SODIUM CHLORIDE 0.9%, WITH OVERFILL, TUBING 363.5 ML (TOTAL VOLUME)? CHEMO INFUSION?D...
  30. ONCOVIN [Concomitant]
     Active Substance: VINCRISTINE SULFATE
     Indication: Product used for unknown indication
     Dosage: 2 MG IN SODIUM CHLORIDE 0.9%, WITH OVERFILL 62 ML (TOTAL VOLUME) CHEMO INFUSION?DATE GIVEN: 07-JU...
  31. AKYNZEO [Concomitant]
     Indication: Product used for unknown indication
     Dosage: 235 MG IN SODIUM CHLORIDE 0.9%, WITH OVERFILL 80 ML (TOTAL VOLUME) IVPB?DATE GIVEN: 07-JUN-2023, ...
  32. ACYCLOVIR [Concomitant]
     Active Substance: ACYCLOVIR
     Indication: Product used for unknown indication
     Dosage: STRENGTH: 800 MG

REACTIONS (2)
  - Neoplasm malignant [Unknown]
  - Adverse drug reaction [Unknown]

NARRATIVE: CASE EVENT DATE: 20230101
